FAERS Safety Report 9855123 (Version 1)
Quarter: 2014Q1

REPORT INFORMATION
  Report Type: Spontaneous
  Country: IN (occurrence: None)
  Receive Date: 20140127
  Receipt Date: 20140127
  Transmission Date: 20141002
  Serious: Yes (Hospitalization)
  Sender: FDA-Public Use
  Company Number: A1057745A

PATIENT
  Age: 38 Year
  Sex: Female

DRUGS (4)
  1. LAMIVUDINE [Suspect]
     Indication: HIV INFECTION
     Dates: start: 200908
  2. LOPINAVIR [Suspect]
     Indication: HIV INFECTION
     Dates: start: 200908
  3. TENOFOVIR [Suspect]
     Indication: HIV INFECTION
  4. RITONAVIR [Suspect]
     Indication: HIV INFECTION

REACTIONS (5)
  - Progressive multifocal leukoencephalopathy [None]
  - Rash [None]
  - Oesophageal candidiasis [None]
  - Treatment failure [None]
  - CD4 lymphocytes decreased [None]
